FAERS Safety Report 9988178 (Version 2)
Quarter: 2014Q1

REPORT INFORMATION
  Report Type: Spontaneous
  Country: US (occurrence: US)
  Receive Date: 20140309
  Receipt Date: 20140309
  Transmission Date: 20141002
  Serious: Yes (Disabling)
  Sender: FDA-Public Use
  Company Number: US-GE HEALTHCARE MEDICAL DIAGNOSTICS-OSCN-PR-0805S-0258

PATIENT
  Age: 71 Year
  Sex: Male

DRUGS (14)
  1. OMNISCAN [Suspect]
     Indication: PRODUCT USED FOR UNKNOWN INDICATION
     Route: 042
     Dates: start: 20030415, end: 20030415
  2. OMNISCAN [Suspect]
     Indication: HEADACHE
     Route: 042
     Dates: start: 20040226, end: 20040226
  3. OMNISCAN [Suspect]
     Indication: NUCLEAR MAGNETIC RESONANCE IMAGING ABNORMAL
     Route: 042
     Dates: start: 20040318, end: 20040318
  4. OMNISCAN [Suspect]
     Indication: CAROTID ARTERY STENOSIS
     Route: 042
     Dates: start: 20040831, end: 20040831
  5. GADOLINIUM (UNSPECIFIED) [Suspect]
     Indication: BLOOD PRESSURE INADEQUATELY CONTROLLED
     Route: 065
     Dates: start: 19970104, end: 19970104
  6. GADOLINIUM (UNSPECIFIED) [Suspect]
     Indication: PRODUCT USED FOR UNKNOWN INDICATION
     Route: 065
     Dates: start: 19980404, end: 19980404
  7. GADOLINIUM (UNSPECIFIED) [Suspect]
     Indication: PRODUCT USED FOR UNKNOWN INDICATION
     Route: 065
     Dates: start: 19980714, end: 19980714
  8. GADOLINIUM (UNSPECIFIED) [Suspect]
     Indication: ANGIOPATHY
     Route: 065
     Dates: start: 20001116, end: 20001116
  9. GADOLINIUM (UNSPECIFIED) [Suspect]
     Indication: PRODUCT USED FOR UNKNOWN INDICATION
     Route: 065
     Dates: start: 20020109, end: 20020109
  10. GADOLINIUM (UNSPECIFIED) [Suspect]
     Indication: PRODUCT USED FOR UNKNOWN INDICATION
     Route: 065
     Dates: start: 20020314, end: 20020314
  11. GADOLINIUM (UNSPECIFIED) [Suspect]
     Indication: PRODUCT USED FOR UNKNOWN INDICATION
     Route: 065
     Dates: start: 20030320, end: 20030320
  12. GADOLINIUM (UNSPECIFIED) [Suspect]
     Indication: PRODUCT USED FOR UNKNOWN INDICATION
     Route: 065
     Dates: start: 20031024, end: 20031024
  13. GADOLINIUM (UNSPECIFIED) [Suspect]
     Indication: CAROTID ARTERY DISEASE
     Route: 065
     Dates: start: 20031231, end: 20031231
  14. MAGNEVIST [Suspect]
     Indication: PYREXIA
     Route: 065
     Dates: start: 20020425, end: 20020425

REACTIONS (1)
  - Nephrogenic systemic fibrosis [Not Recovered/Not Resolved]
